FAERS Safety Report 10771389 (Version 3)
Quarter: 2015Q2

REPORT INFORMATION
  Report Type: Spontaneous
  Country: FR (occurrence: FR)
  Receive Date: 20150206
  Receipt Date: 20150416
  Transmission Date: 20150821
  Serious: Yes (Life-Threatening, Hospitalization, Other)
  Sender: FDA-Public Use
  Company Number: FR-GLAXOSMITHKLINE-FR2015GSK013739

PATIENT
  Age: 55 Year
  Sex: Male

DRUGS (4)
  1. SEROPLEX [Concomitant]
     Active Substance: ESCITALOPRAM OXALATE
     Indication: DEPRESSION
     Dosage: UNK
     Dates: start: 2013
  2. INEXIUM [Concomitant]
     Active Substance: ESOMEPRAZOLE
     Dosage: UNK
     Dates: start: 2013
  3. LAMICTAL [Suspect]
     Active Substance: LAMOTRIGINE
     Dosage: 25 MG, BID
     Route: 048
     Dates: start: 20150106, end: 20150118
  4. LAMICTAL [Suspect]
     Active Substance: LAMOTRIGINE
     Indication: EPILEPSY
     Dosage: 25 MG, Z
     Route: 048
     Dates: start: 20141231, end: 20150119

REACTIONS (10)
  - Erythema [Recovered/Resolved]
  - Toxic skin eruption [Recovered/Resolved]
  - Pyrexia [Recovered/Resolved]
  - Lung infiltration [Recovered/Resolved]
  - Oral mucosal blistering [Recovered/Resolved]
  - Stevens-Johnson syndrome [Recovered/Resolved]
  - Rash [Recovered/Resolved]
  - Eosinophil count increased [Recovered/Resolved]
  - Conjunctivitis [Recovered/Resolved]
  - Dermatitis bullous [Recovered/Resolved]

NARRATIVE: CASE EVENT DATE: 20150118
